FAERS Safety Report 13936232 (Version 1)
Quarter: 2017Q3

REPORT INFORMATION
  Report Type: Spontaneous
  Country: US (occurrence: US)
  Receive Date: 20170905
  Receipt Date: 20170905
  Transmission Date: 20171127
  Serious: Yes (Other)
  Sender: FDA-Public Use
  Company Number: None

PATIENT
  Age: 71 Year
  Sex: Female
  Weight: 83.9 kg

DRUGS (2)
  1. CEFTAROLINE [Suspect]
     Active Substance: CEFTAROLINE
     Indication: STAPHYLOCOCCAL INFECTION
     Route: 042
     Dates: start: 20170605, end: 20170606
  2. CEFTAROLINE [Suspect]
     Active Substance: CEFTAROLINE
     Indication: BACTERAEMIA
     Route: 042
     Dates: start: 20170605, end: 20170606

REACTIONS (1)
  - Hallucination [None]

NARRATIVE: CASE EVENT DATE: 20170606
